FAERS Safety Report 6360029-3 (Version None)
Quarter: 2009Q3

REPORT INFORMATION
  Report Type: 
  Country: None (occurrence: None)
  Receive Date: 20090917
  Receipt Date: 20090904
  Transmission Date: 20100115
  Serious: Yes (Other)
  Sender: FDA-Public Use
  Company Number: PHHY2009JP34490

PATIENT
  Age: 76 Year
  Sex: Female

DRUGS (5)
  1. LOCHOL [Suspect]
     Indication: DYSLIPIDAEMIA
     Dosage: 20 MG, QD
     Route: 048
     Dates: start: 20090723, end: 20090730
  2. ASPIRIN [Concomitant]
     Route: 048
  3. ADALAT [Concomitant]
     Route: 048
  4. LASIX [Concomitant]
     Dosage: UNK
     Route: 048
  5. MICARDIS [Concomitant]
     Dosage: UNK
     Route: 048

REACTIONS (10)
  - BLOOD ALKALINE PHOSPHATASE INCREASED [None]
  - BLOOD CREATININE INCREASED [None]
  - BLOOD UREA INCREASED [None]
  - BLOOD URIC ACID INCREASED [None]
  - CHROMATURIA [None]
  - GAIT DISTURBANCE [None]
  - GLUCOSE URINE PRESENT [None]
  - MALAISE [None]
  - MYALGIA [None]
  - PROTEIN URINE PRESENT [None]
